FAERS Safety Report 7833497-5 (Version None)
Quarter: 2011Q4

REPORT INFORMATION
  Report Type: 
  Country: None (occurrence: None)
  Receive Date: 20111024
  Receipt Date: 20111020
  Transmission Date: 20120403
  Serious: Yes (Life-Threatening)
  Sender: FDA-Public Use
  Company Number: GB-PFIZER INC-2011254626

PATIENT
  Age: 3 Year
  Sex: Female
  Weight: 12 kg

DRUGS (3)
  1. PYRIDOSTIGMINE [Concomitant]
  2. 3,4-DIAMINOPYRIDINE [Concomitant]
  3. AZITHROMYCIN [Suspect]
     Indication: LOWER RESPIRATORY TRACT INFECTION
     Dosage: UNK
     Route: 048
     Dates: start: 20111011, end: 20111011

REACTIONS (9)
  - DYSPNOEA [None]
  - DROOLING [None]
  - RESPIRATORY DEPRESSION [None]
  - COUGH [None]
  - CYANOSIS [None]
  - CONDITION AGGRAVATED [None]
  - HYPOTONIA [None]
  - INCREASED BRONCHIAL SECRETION [None]
  - DEPRESSED LEVEL OF CONSCIOUSNESS [None]
